FAERS Safety Report 14662647 (Version 1)
Quarter: 2018Q1

REPORT INFORMATION
  Report Type: Spontaneous
  Country: US (occurrence: US)
  Receive Date: 20180321
  Receipt Date: 20180321
  Transmission Date: 20180509
  Serious: Yes (Other)
  Sender: FDA-Public Use
  Company Number: US-ROCHE-2088142

PATIENT
  Sex: Female

DRUGS (8)
  1. CITALOPRAM [Concomitant]
     Active Substance: CITALOPRAM HYDROBROMIDE
  2. PREDNISONE. [Concomitant]
     Active Substance: PREDNISONE
  3. CELLCEPT [Suspect]
     Active Substance: MYCOPHENOLATE MOFETIL\MYCOPHENOLATE MOFETIL HYDROCHLORIDE
     Indication: PRODUCT USED FOR UNKNOWN INDICATION
     Route: 065
  4. BENLYSTA [Suspect]
     Active Substance: BELIMUMAB
     Indication: SYSTEMIC LUPUS ERYTHEMATOSUS
     Dosage: THERAPY START DATE IN LATE 2012 OR LATE 2013
     Route: 042
     Dates: end: 2016
  5. BENLYSTA [Suspect]
     Active Substance: BELIMUMAB
     Dosage: MOSE RECENT DOSE IN DEC 2017
     Route: 042
     Dates: start: 2017
  6. ESTROPIPATE. [Concomitant]
     Active Substance: ESTROPIPATE
  7. CELLCEPT [Suspect]
     Active Substance: MYCOPHENOLATE MOFETIL\MYCOPHENOLATE MOFETIL HYDROCHLORIDE
     Dosage: THERAPY WITH HALF THE INITIAL DOSE
     Route: 065
  8. PLAQUENIL [Concomitant]
     Active Substance: HYDROXYCHLOROQUINE SULFATE

REACTIONS (2)
  - Impaired work ability [Unknown]
  - Respiratory tract infection [Recovered/Resolved]
